FAERS Safety Report 10337096 (Version 1)
Quarter: 2014Q3

REPORT INFORMATION
  Report Type: Report from Study
  Country: AT (occurrence: AT)
  Receive Date: 20140723
  Receipt Date: 20140723
  Transmission Date: 20150326
  Serious: Yes (Hospitalization, Other)
  Sender: FDA-Public Use
  Company Number: AT-ASTRAZENECA-2014SE50345

PATIENT
  Age: 66 Year
  Sex: Male

DRUGS (4)
  1. ASA [Suspect]
     Active Substance: ASPIRIN
     Indication: ACUTE CORONARY SYNDROME
     Route: 048
  2. TICAGRELOR [Suspect]
     Active Substance: TICAGRELOR
     Indication: ACUTE CORONARY SYNDROME
     Route: 048
     Dates: start: 20140409
  3. UNFRACTIONATED HEPARIN [Concomitant]
     Active Substance: HEPARIN SODIUM
  4. BIVALIRUDIN [Concomitant]
     Active Substance: BIVALIRUDIN
     Dosage: 15 ML + 35 ML/H

REACTIONS (1)
  - Acute myocardial infarction [Recovered/Resolved]

NARRATIVE: CASE EVENT DATE: 20140610
